FAERS Safety Report 16570809 (Version 2)
Quarter: 2019Q3

REPORT INFORMATION
  Report Type: Other
  Country: CA (occurrence: CA)
  Receive Date: 20190715
  Receipt Date: 20190726
  Transmission Date: 20191004
  Serious: Yes (Other)
  Sender: FDA-Public Use
  Company Number: CA-TITAN PHARMACEUTICALS-2019TAN00028

PATIENT
  Sex: Female
  Weight: 3 kg

DRUGS (12)
  1. ACETAMINOPHEN/OXYCODONE HYDROCHLORIDE/OXYCODONE TEREPHTHALATE [Suspect]
     Active Substance: ACETAMINOPHEN\OXYCODONE HYDROCHLORIDE\OXYCODONE TEREPHTHALATE
     Indication: EXPOSURE DURING PREGNANCY
     Dosage: UNK
     Route: 064
  2. CITALOPRAM [Suspect]
     Active Substance: CITALOPRAM HYDROBROMIDE
     Indication: EXPOSURE VIA BREAST MILK
     Dosage: 20 MG, 1X/DAY
     Route: 064
  3. NICOTINE. [Suspect]
     Active Substance: NICOTINE
     Indication: EXPOSURE VIA BREAST MILK
     Dosage: UNK
     Route: 063
  4. NICOTINE. [Suspect]
     Active Substance: NICOTINE
     Indication: EXPOSURE DURING PREGNANCY
  5. CITALOPRAM [Suspect]
     Active Substance: CITALOPRAM HYDROBROMIDE
     Indication: EXPOSURE VIA BREAST MILK
     Dosage: 20 MG, 1X/DAY
     Route: 063
  6. NICOTINE. [Suspect]
     Active Substance: NICOTINE
     Indication: EXPOSURE VIA BREAST MILK
     Dosage: UNK
     Route: 064
  7. BUPRENORPHINE. [Suspect]
     Active Substance: BUPRENORPHINE
     Indication: EXPOSURE DURING PREGNANCY
     Dosage: UNK
     Route: 063
  8. BUPRENORPHINE. [Suspect]
     Active Substance: BUPRENORPHINE
     Dosage: 1 DOSAGE UNITS, 1X/DAY
     Route: 064
  9. CITALOPRAM [Suspect]
     Active Substance: CITALOPRAM HYDROBROMIDE
     Indication: EXPOSURE DURING PREGNANCY
  10. BUPRENORPHINE. [Suspect]
     Active Substance: BUPRENORPHINE
     Indication: EXPOSURE VIA BREAST MILK
     Dosage: 1 DOSAGE UNITS, 1X/DAY
     Route: 064
  11. CITALOPRAM [Suspect]
     Active Substance: CITALOPRAM HYDROBROMIDE
     Indication: EXPOSURE DURING PREGNANCY
  12. NICOTINE. [Suspect]
     Active Substance: NICOTINE
     Indication: EXPOSURE DURING PREGNANCY

REACTIONS (5)
  - Maternal exposure during breast feeding [Recovered/Resolved]
  - Pregnancy [Recovered/Resolved]
  - Drug withdrawal syndrome [Recovered/Resolved]
  - Neonatal respiratory distress [Recovered/Resolved]
  - Poor feeding infant [Recovered/Resolved]
